FAERS Safety Report 14281591 (Version 10)
Quarter: 2018Q2

REPORT INFORMATION
  Report Type: Spontaneous
  Country: US (occurrence: US)
  Receive Date: 20171213
  Receipt Date: 20180507
  Transmission Date: 20180711
  Serious: Yes (Other)
  Sender: FDA-Public Use
  Company Number: US-PFIZER INC-2017531270

PATIENT
  Age: 57 Year
  Sex: Male
  Weight: 71.21 kg

DRUGS (17)
  1. LISINOPRIL. [Concomitant]
     Active Substance: LISINOPRIL
     Indication: HYPERTENSION
     Dosage: 20 MG, 2X/DAY
     Route: 048
  2. CLONAZEPAM. [Concomitant]
     Active Substance: CLONAZEPAM
     Indication: SLEEP DISORDER
     Dosage: 2 MG, 1X/DAY
     Route: 048
  3. SUTENT [Suspect]
     Active Substance: SUNITINIB MALATE
     Dosage: 25 MG, CYCLIC (DAILY FOR 2 WEEKS ON AND 1 WEEK OFF)
     Dates: start: 20171202
  4. CLONAZEPAM. [Concomitant]
     Active Substance: CLONAZEPAM
     Indication: ANXIETY
  5. PROTONIX [Concomitant]
     Active Substance: PANTOPRAZOLE SODIUM
     Dosage: UNK
  6. FLOMAX [Concomitant]
     Active Substance: TAMSULOSIN HYDROCHLORIDE
     Indication: URINE FLOW DECREASED
     Dosage: 0.4 MG, 1X/DAY (AT NIGHT)
     Route: 048
  7. SUCRALFATE. [Concomitant]
     Active Substance: SUCRALFATE
     Dosage: UNK
  8. NITROGLYCERINE [Concomitant]
     Active Substance: NITROGLYCERIN
     Dosage: UNK
  9. SUTENT [Suspect]
     Active Substance: SUNITINIB MALATE
     Dosage: 25 MG, CYCLIC (DAILY FOR 2 WEEKS ON AND 1 WEEK OFF)
     Dates: start: 20180327
  10. KLONOPIN [Concomitant]
     Active Substance: CLONAZEPAM
     Dosage: UNK
  11. SUTENT [Suspect]
     Active Substance: SUNITINIB MALATE
     Indication: METASTATIC RENAL CELL CARCINOMA
     Dosage: 50 MG, 1X/DAY
     Route: 048
     Dates: start: 201711, end: 201712
  12. ZANTAC [Concomitant]
     Active Substance: RANITIDINE HYDROCHLORIDE
     Dosage: UNK
  13. BAYER ASPIRIN [Concomitant]
     Active Substance: ASPIRIN
     Indication: CARDIAC DISORDER
     Dosage: 325 MG, UNK
  14. SUTENT [Suspect]
     Active Substance: SUNITINIB MALATE
     Dosage: 37.5 MG, CYCLIC (2 WEEKS ON/1 WEEK OFF)
     Dates: start: 20171202, end: 20180312
  15. BENAZEPRIL [Concomitant]
     Active Substance: BENAZEPRIL HYDROCHLORIDE
     Dosage: UNK
  16. LOPRESSOR [Concomitant]
     Active Substance: METOPROLOL TARTRATE
     Indication: HYPERTENSION
     Dosage: 25 MG, 2X/DAY
     Route: 048
  17. POLYETHYLENE GLYCOL [Concomitant]
     Active Substance: POLYETHYLENE GLYCOLS
     Dosage: UNK

REACTIONS (28)
  - Weight decreased [Recovered/Resolved]
  - Renal pain [Unknown]
  - Decreased appetite [Unknown]
  - Condition aggravated [Unknown]
  - Migraine [Unknown]
  - Muscle disorder [Unknown]
  - Asthenia [Unknown]
  - Headache [Recovered/Resolved]
  - Arthralgia [Unknown]
  - Malaise [Unknown]
  - Feeling cold [Unknown]
  - Faeces discoloured [Unknown]
  - Haematochezia [Unknown]
  - Diarrhoea [Not Recovered/Not Resolved]
  - Gait disturbance [Unknown]
  - Pain [Not Recovered/Not Resolved]
  - Procedural pain [Unknown]
  - Joint swelling [Unknown]
  - Hypertension [Unknown]
  - Nausea [Not Recovered/Not Resolved]
  - Post procedural discomfort [Unknown]
  - Nasopharyngitis [Unknown]
  - Flatulence [Unknown]
  - Abdominal distension [Unknown]
  - Fatigue [Unknown]
  - Bone pain [Not Recovered/Not Resolved]
  - Feeling abnormal [Unknown]
  - Skin abrasion [Unknown]

NARRATIVE: CASE EVENT DATE: 201711
